FAERS Safety Report 22010846 (Version 1)
Quarter: 2023Q1

REPORT INFORMATION
  Report Type: Spontaneous
  Country: CA (occurrence: CA)
  Receive Date: 20230220
  Receipt Date: 20230220
  Transmission Date: 20230418
  Serious: Yes (Death, Other)
  Sender: FDA-Public Use
  Company Number: CA-BAXTER-2023BAX013075

PATIENT
  Age: 70 Year
  Sex: Male

DRUGS (2)
  1. DOXORUBICIN [Suspect]
     Active Substance: DOXORUBICIN
     Indication: Product used for unknown indication
     Dosage: DOSAGE FORM: NOT SPECIFIED
     Route: 065
  2. DACARBAZINE [Suspect]
     Active Substance: DACARBAZINE
     Indication: Product used for unknown indication
     Dosage: DOSAGE FORM: POWDER FOR SOLUTION INTRAVENOUS
     Route: 065

REACTIONS (4)
  - Disease progression [Fatal]
  - Drug ineffective [Fatal]
  - Metastasis [Fatal]
  - Tumour thrombosis [Fatal]
